FAERS Safety Report 8190400-9 (Version None)
Quarter: 2012Q1

REPORT INFORMATION
  Report Type: 
  Country: None (occurrence: None)
  Receive Date: 20120307
  Receipt Date: 20120221
  Transmission Date: 20120608
  Serious: Yes (Other)
  Sender: FDA-Public Use
  Company Number: US-ENDO PHARMACEUTICALS INC.-PERC20120036

PATIENT
  Sex: Male

DRUGS (4)
  1. PERCOCET [Suspect]
     Indication: OSTEOCHONDROSIS
  2. OPANA ER [Suspect]
     Indication: PAIN
     Route: 048
     Dates: end: 20120201
  3. OPANA ER [Suspect]
     Indication: OSTEOCHONDROSIS
  4. PERCOCET [Suspect]
     Indication: PAIN
     Dosage: 360/11700 MG
     Route: 048
     Dates: start: 20120201

REACTIONS (3)
  - INTENTIONAL DRUG MISUSE [None]
  - OVERDOSE [None]
  - WITHDRAWAL SYNDROME [None]
